FAERS Safety Report 16448797 (Version 1)
Quarter: 2019Q2

REPORT INFORMATION
  Report Type: Report from Study
  Country: ES (occurrence: ES)
  Receive Date: 20190619
  Receipt Date: 20190619
  Transmission Date: 20190711
  Serious: Yes (Other)
  Sender: FDA-Public Use
  Company Number: ES-TEVA-2019-ES-1064178

PATIENT
  Sex: Female

DRUGS (5)
  1. LEVOFLOXACIN. [Concomitant]
     Active Substance: LEVOFLOXACIN
  2. CYCLOSERINE. [Concomitant]
     Active Substance: CYCLOSERINE
     Indication: TUBERCULOSIS
     Route: 065
  3. LINEZOLID. [Suspect]
     Active Substance: LINEZOLID
     Indication: TUBERCULOSIS
     Dosage: 10 MG/KG THRICE DAILY
     Route: 065
  4. RIFAMPIN. [Concomitant]
     Active Substance: RIFAMPIN
     Indication: TUBERCULOSIS
     Route: 065
  5. PREDNISONE. [Concomitant]
     Active Substance: PREDNISONE
     Route: 065

REACTIONS (2)
  - Neutropenia [Unknown]
  - Leukopenia [Unknown]
